FAERS Safety Report 10421697 (Version 3)
Quarter: 2014Q3

REPORT INFORMATION
  Report Type: Report from Study
  Country: HK (occurrence: HK)
  Receive Date: 20140901
  Receipt Date: 20140915
  Transmission Date: 20150326
  Serious: Yes (Hospitalization)
  Sender: FDA-Public Use
  Company Number: HK-BIOGENIDEC-2014BI035699

PATIENT
  Age: 4 Year
  Sex: Male
  Weight: 15 kg

DRUGS (3)
  1. CEFACLOR. [Concomitant]
     Active Substance: CEFACLOR
     Route: 048
     Dates: start: 20140408, end: 20140410
  2. ANTIHEMOPHILIC FACTOR (RECOMBINANT), FC FUSION PROTEIN [Suspect]
     Active Substance: (1-743)-(1638-2332)-BLOOD-COAGULATION FACTOR VIII (SYNTHETIC HUMAN) FUSION PROTEIN WITH IMMUNOGLOBULIN G1 (SYNTHETIC HUMAN FC DOMAIN FRAGMENT), (1444-6^),(1447-9^)-BIS(DISULFIDE) WITH IMMUNOGLOBULIN G1 (SYNTHETIC HUMAN FC DOMAIN FRAGMENT)
     Indication: FACTOR VIII DEFICIENCY
     Route: 042
     Dates: start: 20130509
  3. ANTIHEMOPHILIC FACTOR (RECOMBINANT), FC FUSION PROTEIN [Suspect]
     Active Substance: (1-743)-(1638-2332)-BLOOD-COAGULATION FACTOR VIII (SYNTHETIC HUMAN) FUSION PROTEIN WITH IMMUNOGLOBULIN G1 (SYNTHETIC HUMAN FC DOMAIN FRAGMENT), (1444-6^),(1447-9^)-BIS(DISULFIDE) WITH IMMUNOGLOBULIN G1 (SYNTHETIC HUMAN FC DOMAIN FRAGMENT)
     Indication: FACTOR VIII DEFICIENCY
     Route: 042
     Dates: start: 20130506

REACTIONS (1)
  - Upper respiratory tract infection [Recovered/Resolved]

NARRATIVE: CASE EVENT DATE: 20140411
